FAERS Safety Report 8515863-8 (Version None)
Quarter: 2012Q3

REPORT INFORMATION
  Report Type: 
  Country: None (occurrence: None)
  Receive Date: 20120717
  Receipt Date: 20120706
  Transmission Date: 20120928
  Serious: Yes (Hospitalization)
  Sender: FDA-Public Use
  Company Number: BE-INCYTE CORPORATION-2012IN001191

PATIENT
  Sex: Female

DRUGS (3)
  1. FRAXIPARIN [Concomitant]
     Dosage: UNK
     Dates: start: 20120607, end: 20120609
  2. ASPIRIN [Concomitant]
     Dosage: UNK
     Dates: end: 20120609
  3. INC424 [Suspect]
     Indication: MYELOFIBROSIS
     Dosage: 20 MG, BID
     Route: 048
     Dates: start: 20120601, end: 20120609

REACTIONS (1)
  - ABDOMINAL WALL HAEMATOMA [None]
